FAERS Safety Report 5853827-3 (Version None)
Quarter: 2008Q3

REPORT INFORMATION
  Report Type: 
  Country: None (occurrence: None)
  Receive Date: 20080822
  Receipt Date: 20080819
  Transmission Date: 20090109
  Serious: Yes (Hospitalization)
  Sender: FDA-Public Use
  Company Number: US-ASTRAZENECA-2008UW16489

PATIENT
  Age: 56 Year
  Sex: Male
  Weight: 104.8 kg

DRUGS (15)
  1. BUDESONIDE [Suspect]
     Indication: CROHN'S DISEASE
     Route: 048
  2. REMICADE [Suspect]
     Indication: CROHN'S DISEASE
     Dosage: 5MG/KG
     Route: 041
     Dates: start: 19991116
  3. REMICADE [Suspect]
     Dosage: 5MG/KG
     Route: 041
     Dates: start: 20010118
  4. REMICADE [Suspect]
     Dosage: 10MG/KG
     Route: 041
     Dates: start: 20010806
  5. ACETAMINOPHEN [Concomitant]
     Dates: start: 20010806
  6. QUESTRAN [Concomitant]
     Indication: CROHN'S DISEASE
  7. IMODIUM [Concomitant]
     Indication: CROHN'S DISEASE
  8. PREVACID [Concomitant]
     Indication: CROHN'S DISEASE
  9. ADALIMUMAB [Concomitant]
     Indication: CROHN'S DISEASE
  10. LOMOTIL [Concomitant]
     Indication: CROHN'S DISEASE
  11. ANTIBIOTICS [Concomitant]
  12. ANTIDEPRESSANTS [Concomitant]
  13. MESALAMINE [Concomitant]
  14. METHOTREXATE SODIUM [Concomitant]
  15. PREDNISONE TAB [Concomitant]

REACTIONS (2)
  - DEHYDRATION [None]
  - ELECTROLYTE IMBALANCE [None]
